FAERS Safety Report 15986124 (Version 1)
Quarter: 2019Q1

REPORT INFORMATION
  Report Type: Other
  Country: NL (occurrence: NL)
  Receive Date: 20190220
  Receipt Date: 20190220
  Transmission Date: 20190418
  Serious: Yes (Hospitalization, Other)
  Sender: FDA-Public Use
  Company Number: NL-APOTEX-2019AP007965

PATIENT
  Age: 41 Year
  Sex: Male
  Weight: 109 kg

DRUGS (9)
  1. NORTRILEN [Suspect]
     Active Substance: NORTRIPTYLINE
     Indication: PRODUCT USED FOR UNKNOWN INDICATION
     Dosage: 100 MG, DOSAGE FORM: TABLET
     Route: 048
  2. DOMPERIDON /00498201/ [Suspect]
     Active Substance: DOMPERIDONE
     Indication: PRODUCT USED FOR UNKNOWN INDICATION
     Dosage: 30 MG
     Route: 048
     Dates: start: 20091209, end: 20111221
  3. METOPROLOL. [Suspect]
     Active Substance: METOPROLOL
     Indication: PRODUCT USED FOR UNKNOWN INDICATION
     Dosage: 50 MG, DOSAGE FORM: TABLET
     Route: 048
  4. BUSCOPAN DRAGEES 10 MG [Suspect]
     Active Substance: BUTYLSCOPOLAMINE BROMIDE
     Indication: PRODUCT USED FOR UNKNOWN INDICATION
     Dosage: 30 MG, DOSAGE FORM: DRAGEES
     Route: 048
     Dates: start: 20091209, end: 20111221
  5. OXAZEPAM. [Concomitant]
     Active Substance: OXAZEPAM
     Indication: PRODUCT USED FOR UNKNOWN INDICATION
     Dosage: DOSAGE FORM: TABLET ; AS NECESSARY
     Route: 048
  6. SEROQUEL [Suspect]
     Active Substance: QUETIAPINE FUMARATE
     Indication: PRODUCT USED FOR UNKNOWN INDICATION
     Dosage: 25 MG, DOSAGE FORM: FILM COATED TABLET
     Route: 048
     Dates: start: 20111124, end: 20111221
  7. PANTOPRAZOL [Suspect]
     Active Substance: PANTOPRAZOLE SODIUM
     Indication: PRODUCT USED FOR UNKNOWN INDICATION
     Dosage: 40 MG, DOSAGE FORM: TABLET
     Route: 048
  8. PANADOL ARTROSE [Concomitant]
     Indication: PRODUCT USED FOR UNKNOWN INDICATION
     Dosage: 3000 MG, DOSAGE FORM: TABLET
     Route: 048
     Dates: start: 20111124, end: 20111221
  9. AMLODIPINE [Suspect]
     Active Substance: AMLODIPINE BESYLATE
     Indication: PRODUCT USED FOR UNKNOWN INDICATION
     Dosage: 10 MG, DOSAGE FORM: TABLET
     Route: 048
     Dates: start: 20111124, end: 20111223

REACTIONS (4)
  - Abdominal discomfort [Not Recovered/Not Resolved]
  - Drug abuse [Unknown]
  - Alcohol use [Unknown]
  - Depression [Unknown]

NARRATIVE: CASE EVENT DATE: 20090815
